FAERS Safety Report 22905694 (Version 2)
Quarter: 2023Q4

REPORT INFORMATION
  Report Type: Spontaneous
  Country: JP (occurrence: JP)
  Receive Date: 20230905
  Receipt Date: 20231102
  Transmission Date: 20240109
  Serious: Yes (Other)
  Sender: FDA-Public Use
  Company Number: JP-002147023-NVSJ2023JP013157

PATIENT
  Age: 38 Year
  Sex: Male

DRUGS (3)
  1. VOTRIENT [Suspect]
     Active Substance: PAZOPANIB HYDROCHLORIDE
     Indication: Pancreatic carcinoma
     Dosage: UNK
     Route: 048
  2. VOTRIENT [Suspect]
     Active Substance: PAZOPANIB HYDROCHLORIDE
     Indication: Liposarcoma metastatic
     Dosage: 800 MG
     Route: 048
     Dates: start: 20210506, end: 202106
  3. VOTRIENT [Suspect]
     Active Substance: PAZOPANIB HYDROCHLORIDE
     Dosage: 400 MG
     Route: 048
     Dates: start: 20230816

REACTIONS (3)
  - Liposarcoma metastatic [Recovering/Resolving]
  - Pancreatic carcinoma [Recovering/Resolving]
  - Malignant neoplasm progression [Recovering/Resolving]
